FAERS Safety Report 18005032 (Version 1)
Quarter: 2020Q3

REPORT INFORMATION
  Report Type: Spontaneous
  Country: US (occurrence: US)
  Receive Date: 20200709
  Receipt Date: 20200709
  Transmission Date: 20201103
  Serious: Yes (Disabling)
  Sender: FDA-Public Use
  Company Number: None

PATIENT
  Age: 65 Year
  Sex: Male
  Weight: 81.65 kg

DRUGS (2)
  1. DAPSONE 25MG TABLETS [Suspect]
     Active Substance: DAPSONE
  2. DAPSONE 25MG TABLETS [Suspect]
     Active Substance: DAPSONE
     Indication: DERMATITIS HERPETIFORMIS
     Dosage: ?          QUANTITY:1;?
     Route: 048
     Dates: start: 20191202, end: 202005

REACTIONS (5)
  - Peripheral swelling [None]
  - Pain in extremity [None]
  - Blood creatinine increased [None]
  - Muscular weakness [None]
  - Gait disturbance [None]

NARRATIVE: CASE EVENT DATE: 20191218
